FAERS Safety Report 4901314-9 (Version None)
Quarter: 2006Q1

REPORT INFORMATION
  Report Type: 
  Country: None (occurrence: None)
  Receive Date: 20060202
  Receipt Date: 20060125
  Transmission Date: 20060701
  Serious: Yes (Other)
  Sender: FDA-Public Use
  Company Number: 2006-01-1836

PATIENT
  Age: 67 Year
  Sex: Female

DRUGS (2)
  1. LORATADINE [Suspect]
     Indication: NASOPHARYNGITIS
     Dosage: ORAL
     Route: 048
  2. PSEUDOEPHEDRINE [Suspect]
     Indication: NASOPHARYNGITIS

REACTIONS (1)
  - ANAPHYLACTIC REACTION [None]
